FAERS Safety Report 8915556 (Version 2)
Quarter: 2013Q4

REPORT INFORMATION
  Report Type: Other
  Country: US (occurrence: US)
  Receive Date: 20121119
  Receipt Date: 20131217
  Transmission Date: 20140711
  Serious: Yes (Hospitalization, Other)
  Sender: FDA-Public Use
  Company Number: US-PURDUE-GBR-2012-0012093

PATIENT
  Age: 40 Year
  Sex: Male

DRUGS (2)
  1. NON-PMN MORPHINE SULFATE [Suspect]
     Indication: PAIN
     Dosage: UNK, SEE TEXT
     Route: 037
     Dates: start: 2006, end: 200702
  2. NON-PMN MORPHINE SULFATE [Suspect]
     Dosage: UNK UNK, SEE TEXT
     Route: 037
     Dates: start: 1995, end: 2006

REACTIONS (4)
  - Hypopituitarism [Not Recovered/Not Resolved]
  - Gynaecomastia [Unknown]
  - Secondary hypothyroidism [Not Recovered/Not Resolved]
  - Fatigue [Recovering/Resolving]
